FAERS Safety Report 9419930 (Version 1)
Quarter: 2013Q3

REPORT INFORMATION
  Report Type: Spontaneous
  Country: US (occurrence: US)
  Receive Date: 20130725
  Receipt Date: 20130725
  Transmission Date: 20140515
  Serious: No
  Sender: FDA-Public Use
  Company Number: US-TEVA-419940USA

PATIENT
  Age: 24 Year
  Sex: Female
  Weight: 99.88 kg

DRUGS (1)
  1. PARAGARD 380A [Suspect]
     Indication: CONTRACEPTION
     Dates: start: 20121022, end: 20130401

REACTIONS (1)
  - Device expulsion [Recovered/Resolved]
